FAERS Safety Report 6332787-5 (Version None)
Quarter: 2009Q3

REPORT INFORMATION
  Report Type: 
  Country: None (occurrence: None)
  Receive Date: 20090828
  Receipt Date: 20090821
  Transmission Date: 20100115
  Serious: Yes (Hospitalization)
  Sender: FDA-Public Use
  Company Number: B0589685A

PATIENT
  Age: 27 Year
  Sex: Female

DRUGS (2)
  1. EPIVIR [Suspect]
     Indication: HIV INFECTION
     Route: 048
     Dates: start: 20090429, end: 20090525
  2. VIRAMUNE [Suspect]
     Indication: HIV INFECTION
     Route: 048
     Dates: start: 20090429, end: 20090525

REACTIONS (5)
  - ABDOMINAL PAIN [None]
  - CYTOLYTIC HEPATITIS [None]
  - HEPATIC ENZYME INCREASED [None]
  - HEPATIC STEATOSIS [None]
  - VOMITING [None]
